FAERS Safety Report 5236838-0 (Version None)
Quarter: 2007Q1

REPORT INFORMATION
  Report Type: 
  Country: None (occurrence: None)
  Receive Date: 20061208
  Receipt Date: 20050713
  Transmission Date: 20070707
  Serious: Yes (Other)
  Sender: FDA-Public Use
  Company Number: 2005UW10511

PATIENT
  Age: 78 Year
  Sex: Female
  Weight: 94.347 kg

DRUGS (5)
  1. CRESTOR [Suspect]
     Indication: BLOOD CHOLESTEROL INCREASED
     Dosage: 5 MG  PO
     Route: 048
     Dates: end: 20050711
  2. SULAR [Concomitant]
  3. BISOPROLOL [Concomitant]
  4. RANITIDINE [Concomitant]
  5. ZOLOFT [Concomitant]

REACTIONS (3)
  - ARTHRALGIA [None]
  - BACK PAIN [None]
  - GAIT DISTURBANCE [None]
